FAERS Safety Report 9369413 (Version 1)
Quarter: 2013Q2

REPORT INFORMATION
  Report Type: Spontaneous
  Country: US (occurrence: US)
  Receive Date: 20130626
  Receipt Date: 20130626
  Transmission Date: 20140414
  Serious: No
  Sender: FDA-Public Use
  Company Number: US-009507513-1306USA011567

PATIENT
  Sex: Female
  Weight: 64.85 kg

DRUGS (1)
  1. NUVARING [Suspect]
     Dosage: 3 WEEKS IN/ 1 WEEK OUT
     Route: 067
     Dates: start: 201110

REACTIONS (3)
  - Poor quality drug administered [Unknown]
  - Product quality issue [Unknown]
  - No adverse event [Unknown]
